FAERS Safety Report 5719680-3 (Version None)
Quarter: 2008Q2

REPORT INFORMATION
  Report Type: 
  Country: None (occurrence: None)
  Receive Date: 20080428
  Receipt Date: 20080417
  Transmission Date: 20081010
  Serious: Yes (Other)
  Sender: FDA-Public Use
  Company Number: US-BAYER-200811530BCC

PATIENT
  Age: 67 Year
  Sex: Male
  Weight: 122 kg

DRUGS (3)
  1. ALEVE (CAPLET) [Suspect]
     Indication: TENDON PAIN
     Route: 048
     Dates: start: 20080101
  2. GLIPIZIDE [Concomitant]
  3. ATENOLOL [Concomitant]

REACTIONS (10)
  - DYSPNOEA [None]
  - FEELING ABNORMAL [None]
  - FUNGAL INFECTION [None]
  - GASTRIC ULCER [None]
  - HAEMATEMESIS [None]
  - HAEMATOCHEZIA [None]
  - HEART RATE INCREASED [None]
  - HEPATOMEGALY [None]
  - HYPOTENSION [None]
  - VISUAL ACUITY REDUCED [None]
